FAERS Safety Report 18257338 (Version 2)
Quarter: 2021Q1

REPORT INFORMATION
  Report Type: Spontaneous
  Country: US (occurrence: US)
  Receive Date: 20200911
  Receipt Date: 20210115
  Transmission Date: 20210419
  Serious: Yes (Other)
  Sender: FDA-Public Use
  Company Number: US-GILEAD-2020-0494683

PATIENT
  Age: 47 Year
  Sex: Male

DRUGS (3)
  1. ATRIPLA [Suspect]
     Active Substance: EFAVIRENZ\EMTRICITABINE\TENOFOVIR DISOPROXIL FUMARATE
     Indication: HIV INFECTION
     Dosage: UNK
     Route: 048
     Dates: start: 2006, end: 201902
  2. BIKTARVY [Concomitant]
     Active Substance: BICTEGRAVIR SODIUM\EMTRICITABINE\TENOFOVIR ALAFENAMIDE FUMARATE
     Indication: PRODUCT USED FOR UNKNOWN INDICATION
  3. ODEFSEY [Concomitant]
     Active Substance: EMTRICITABINE\RILPIVIRINE HYDROCHLORIDE\TENOFOVIR ALAFENAMIDE FUMARATE
     Indication: PRODUCT USED FOR UNKNOWN INDICATION

REACTIONS (11)
  - Foot fracture [Recovered/Resolved]
  - Anxiety [Unknown]
  - Bone density abnormal [Unknown]
  - Wrist fracture [Recovered/Resolved]
  - Osteonecrosis [Unknown]
  - Anhedonia [Unknown]
  - Bone density decreased [Unknown]
  - Multiple fractures [Unknown]
  - Pain [Unknown]
  - Bone loss [Unknown]
  - Emotional distress [Unknown]

NARRATIVE: CASE EVENT DATE: 20170925
